FAERS Safety Report 5535979-8 (Version None)
Quarter: 2007Q4

REPORT INFORMATION
  Report Type: 
  Country: None (occurrence: None)
  Receive Date: 20071206
  Receipt Date: 20071203
  Transmission Date: 20080405
  Serious: Yes (Death, Hospitalization, Other)
  Sender: FDA-Public Use
  Company Number: JP-WYE-H01560507

PATIENT
  Sex: Male
  Weight: 75 kg

DRUGS (2)
  1. MYLOTARG [Suspect]
     Indication: ACUTE MYELOID LEUKAEMIA
     Route: 041
     Dates: start: 20070523, end: 20070523
  2. MYLOTARG [Suspect]
     Route: 041
     Dates: start: 20070606, end: 20070606

REACTIONS (5)
  - BRONCHOPULMONARY ASPERGILLOSIS [None]
  - CONDITION AGGRAVATED [None]
  - FEBRILE NEUTROPENIA [None]
  - LEUKAEMIA [None]
  - MULTI-ORGAN FAILURE [None]
